FAERS Safety Report 24288411 (Version 2)
Quarter: 2024Q4

REPORT INFORMATION
  Report Type: Spontaneous
  Country: CN (occurrence: CN)
  Receive Date: 20240906
  Receipt Date: 20241115
  Transmission Date: 20250114
  Serious: Yes (Hospitalization)
  Sender: ROCHE
  Company Number: CN-002147023-NVSC2024CN175460

PATIENT
  Age: 80 Year
  Sex: Male

DRUGS (4)
  1. RANIBIZUMAB [Suspect]
     Active Substance: RANIBIZUMAB
     Indication: Polypoidal choroidal vasculopathy
     Dosage: UNK
     Route: 050
     Dates: start: 201211, end: 201801
  2. AFLIBERCEPT [Suspect]
     Active Substance: AFLIBERCEPT
     Indication: Polypoidal choroidal vasculopathy
     Dosage: UNK
     Route: 050
     Dates: start: 201811, end: 202110
  3. CONBERCEPT [Suspect]
     Active Substance: CONBERCEPT
     Indication: Polypoidal choroidal vasculopathy
     Dosage: UNK
     Route: 050
     Dates: start: 201802, end: 201810
  4. IRBESARTAN [Concomitant]
     Active Substance: IRBESARTAN
     Indication: Hypertension
     Dosage: 0.15 G, QD
     Route: 065

REACTIONS (3)
  - Cardiomegaly [Recovering/Resolving]
  - Cardiac failure [Recovering/Resolving]
  - Off label use [Unknown]
